FAERS Safety Report 10150171 (Version 2)
Quarter: 2014Q2

REPORT INFORMATION
  Report Type: Report from Study
  Country: US (occurrence: US)
  Receive Date: 20140502
  Receipt Date: 20140513
  Transmission Date: 20141212
  Serious: Yes (Hospitalization)
  Sender: FDA-Public Use
  Company Number: US-GLAXOSMITHKLINE-Z0022536A

PATIENT
  Age: 65 Year
  Sex: Male
  Weight: 91.3 kg

DRUGS (6)
  1. DABRAFENIB [Suspect]
     Dosage: 300MG PER DAY
     Route: 048
     Dates: start: 20140422
  2. PLACEBO [Suspect]
     Route: 048
     Dates: start: 20140421
  3. PANTOPRAZOLE SODIUM [Concomitant]
     Indication: GASTROOESOPHAGEAL REFLUX PROPHYLAXIS
     Dosage: 40MG SINGLE DOSE
     Route: 048
     Dates: start: 20140423, end: 20140423
  4. ASPIRIN [Concomitant]
     Indication: CARDIOVASCULAR EVENT PROPHYLAXIS
     Dosage: 325MG SINGLE DOSE
     Route: 048
     Dates: start: 20140423, end: 20140423
  5. ASPIRIN [Concomitant]
     Indication: CARDIOVASCULAR EVENT PROPHYLAXIS
     Dosage: 81MG PER DAY
     Route: 048
     Dates: start: 20140423
  6. SODIUM CHLORIDE [Concomitant]
     Indication: PROPHYLAXIS AGAINST DEHYDRATION
     Dosage: 1000ML SINGLE DOSE
     Route: 042
     Dates: start: 20140422, end: 20140422

REACTIONS (1)
  - Atrial fibrillation [Recovered/Resolved]
